FAERS Safety Report 9188236 (Version 1)
Quarter: 2013Q1

REPORT INFORMATION
  Report Type: Spontaneous
  Country: US (occurrence: US)
  Receive Date: 20130325
  Receipt Date: 20130325
  Transmission Date: 20140127
  Serious: No
  Sender: FDA-Public Use
  Company Number: US-ASTRAZENECA-2013SE15729

PATIENT
  Sex: Female

DRUGS (2)
  1. NEXIUM [Suspect]
     Indication: PAIN
     Route: 048
  2. PRILOSEC [Suspect]
     Route: 048

REACTIONS (4)
  - Pain [Unknown]
  - Sleep disorder due to general medical condition, insomnia type [Unknown]
  - Intentional drug misuse [Unknown]
  - Drug ineffective [Unknown]
